FAERS Safety Report 9245804 (Version 1)
Quarter: 2013Q2

REPORT INFORMATION
  Report Type: Spontaneous
  Country: US (occurrence: US)
  Receive Date: 20130422
  Receipt Date: 20130422
  Transmission Date: 20140414
  Serious: No
  Sender: FDA-Public Use
  Company Number: US-BRISTOL-MYERS SQUIBB COMPANY-17428376

PATIENT
  Age: 81 Year
  Sex: Female
  Weight: 63.49 kg

DRUGS (13)
  1. ELIQUIS [Suspect]
     Indication: ATRIAL FIBRILLATION
     Dosage: INTERRUPTED FOR 4 DAYS AND RESTARTED ON 01MAR2013
     Route: 048
     Dates: start: 20130221
  2. SOTALOL [Concomitant]
     Dosage: 1/2 TABS
  3. SIMCOR [Concomitant]
  4. PREMARIN [Concomitant]
  5. DICYCLOMINE [Concomitant]
  6. OMEPRAZOLE [Concomitant]
  7. FUROSEMIDE [Concomitant]
  8. KLOR-CON [Concomitant]
  9. CENTRUM [Concomitant]
  10. MULTIVITAMIN [Concomitant]
  11. LUTEIN [Concomitant]
  12. VITAMIN D3 [Concomitant]
  13. CO-Q-10 PLUS [Concomitant]

REACTIONS (3)
  - Flushing [Recovering/Resolving]
  - Paraesthesia [Recovering/Resolving]
  - Generalised erythema [Recovering/Resolving]
